FAERS Safety Report 14066418 (Version 1)
Quarter: 2017Q4

REPORT INFORMATION
  Report Type: Report from Study
  Country: CO (occurrence: CO)
  Receive Date: 20171009
  Receipt Date: 20171009
  Transmission Date: 20180321
  Serious: Yes (Death, Life-Threatening, Other)
  Sender: FDA-Public Use
  Company Number: CO-AMGEN-COLSL2017150827

PATIENT
  Age: 80 Year
  Sex: Female

DRUGS (1)
  1. PROLIA [Suspect]
     Active Substance: DENOSUMAB
     Indication: OSTEOPOROSIS POSTMENOPAUSAL
     Dosage: 60 MG, Q6MO (SEMIANNUAL)
     Route: 058
     Dates: start: 20170605, end: 20170605

REACTIONS (2)
  - Osteoporosis [Fatal]
  - Leukaemia [Fatal]

NARRATIVE: CASE EVENT DATE: 20170727
